FAERS Safety Report 11128475 (Version 1)
Quarter: 2015Q2

REPORT INFORMATION
  Report Type: Spontaneous
  Country: US (occurrence: None)
  Receive Date: 20150520
  Receipt Date: 20150520
  Transmission Date: 20150821
  Serious: Yes (Life-Threatening, Other)
  Sender: FDA-Public Use
  Company Number: None

PATIENT
  Age: 62 Year
  Sex: Male
  Weight: 127 kg

DRUGS (12)
  1. PRAVASTATIN [Concomitant]
     Active Substance: PRAVASTATIN\PRAVASTATIN SODIUM
  2. LYRICA [Concomitant]
     Active Substance: PREGABALIN
  3. ALLOPURINOL. [Concomitant]
     Active Substance: ALLOPURINOL
  4. METFORMIN [Concomitant]
     Active Substance: METFORMIN HYDROCHLORIDE
  5. AMLODIPINE [Concomitant]
     Active Substance: AMLODIPINE BESYLATE
  6. HCTZ-LOSARTAN [Concomitant]
  7. NOVOLOG [Concomitant]
     Active Substance: INSULIN ASPART
  8. CANAGLIFLOZIN [Suspect]
     Active Substance: CANAGLIFLOZIN
     Indication: DIABETES MELLITUS
     Route: 048
     Dates: start: 20141214, end: 20150219
  9. POTASSIUM [Concomitant]
     Active Substance: POTASSIUM
  10. ASPIRIN. [Concomitant]
     Active Substance: ASPIRIN
  11. FINASTERIDE. [Concomitant]
     Active Substance: FINASTERIDE
  12. LANTUS [Concomitant]
     Active Substance: INSULIN GLARGINE

REACTIONS (1)
  - Organising pneumonia [None]

NARRATIVE: CASE EVENT DATE: 20141222
